FAERS Safety Report 21140672 (Version 2)
Quarter: 2022Q3

REPORT INFORMATION
  Report Type: Spontaneous
  Country: US (occurrence: US)
  Receive Date: 20220728
  Receipt Date: 20220805
  Transmission Date: 20221027
  Serious: Yes (Other)
  Sender: FDA-Public Use
  Company Number: US-SA-SAC20220726001558

PATIENT
  Age: 42 Year
  Sex: Male

DRUGS (1)
  1. ZANTAC [Suspect]
     Active Substance: RANITIDINE HYDROCHLORIDE
     Indication: Gastrooesophageal reflux disease
     Dosage: 2 DF, QD
     Route: 048
     Dates: start: 2005, end: 2021

REACTIONS (4)
  - Bladder transitional cell carcinoma [Unknown]
  - Blood urine present [Unknown]
  - Haemorrhage urinary tract [Unknown]
  - Dysuria [Unknown]

NARRATIVE: CASE EVENT DATE: 20210501
